FAERS Safety Report 8294424-2 (Version None)
Quarter: 2012Q2

REPORT INFORMATION
  Report Type: 
  Country: None (occurrence: None)
  Receive Date: 20120418
  Receipt Date: 20120410
  Transmission Date: 20120825
  Serious: Yes (Other)
  Sender: FDA-Public Use
  Company Number: PHEH2012US007842

PATIENT
  Sex: Male

DRUGS (1)
  1. GLEEVEC [Suspect]
     Indication: CHRONIC MYELOID LEUKAEMIA
     Dosage: 400 MG, QD
     Route: 048
     Dates: start: 20120113

REACTIONS (4)
  - ARTHRALGIA [None]
  - INTERVERTEBRAL DISC PROTRUSION [None]
  - BACK PAIN [None]
  - STAPHYLOCOCCAL INFECTION [None]
